FAERS Safety Report 18481511 (Version 4)
Quarter: 2021Q3

REPORT INFORMATION
  Report Type: Spontaneous
  Country: US (occurrence: US)
  Receive Date: 20201109
  Receipt Date: 20210813
  Transmission Date: 20211014
  Serious: No
  Sender: FDA-Public Use
  Company Number: US-PFIZER INC-2020442141

PATIENT
  Age: 58 Year
  Sex: Male

DRUGS (6)
  1. XELJANZ XR [Suspect]
     Active Substance: TOFACITINIB CITRATE
     Indication: PAIN IN EXTREMITY
     Dosage: 11 MG, UNK
     Dates: start: 20201020
  2. COVID?19 VACCINE MRNA (MRNA 1273) [Concomitant]
  3. XELJANZ XR [Suspect]
     Active Substance: TOFACITINIB CITRATE
     Indication: ARTHRITIS
     Dosage: 11 MG, UNK
     Dates: start: 20201022
  4. XELJANZ XR [Suspect]
     Active Substance: TOFACITINIB CITRATE
     Indication: ARTHRALGIA
     Dosage: 11 MG, UNK
     Dates: start: 20200915
  5. XELJANZ XR [Suspect]
     Active Substance: TOFACITINIB CITRATE
     Dosage: 11 MG, UNK
     Dates: start: 20201207
  6. XELJANZ XR [Suspect]
     Active Substance: TOFACITINIB CITRATE
     Dosage: 11 MG, UNK
     Dates: start: 20201006

REACTIONS (5)
  - Pain [Unknown]
  - Arthralgia [Unknown]
  - Abdominal discomfort [Recovered/Resolved]
  - Sensitivity to weather change [Unknown]
  - Insomnia [Unknown]

NARRATIVE: CASE EVENT DATE: 2020
